FAERS Safety Report 6826055-2 (Version None)
Quarter: 2010Q3

REPORT INFORMATION
  Report Type: 
  Country: None (occurrence: None)
  Receive Date: 20100709
  Receipt Date: 20100630
  Transmission Date: 20110219
  Serious: Yes (Hospitalization)
  Sender: FDA-Public Use
  Company Number: BR-ASTRAZENECA-2010SE30870

PATIENT
  Age: 62 Year
  Sex: Male
  Weight: 56 kg

DRUGS (3)
  1. SYMBICORT [Suspect]
     Indication: ASTHMA
     Dosage: 160/4.5 MCG
     Route: 055
     Dates: start: 20090601, end: 20091101
  2. SYMBICORT [Suspect]
     Dosage: 320/9 MCG
     Route: 055
     Dates: start: 20090601, end: 20091101
  3. UNKNOWN [Concomitant]
     Indication: PROSTATIC DISORDER
     Dates: start: 20040101

REACTIONS (3)
  - BENIGN NEOPLASM OF PROSTATE [None]
  - COUGH [None]
  - DYSPNOEA [None]
